FAERS Safety Report 4294501-7 (Version None)
Quarter: 2004Q1

REPORT INFORMATION
  Report Type: 
  Country: None (occurrence: None)
  Receive Date: 20040211
  Receipt Date: 20040127
  Transmission Date: 20041129
  Serious: Yes (Death)
  Sender: FDA-Public Use
  Company Number: USA031255000

PATIENT
  Age: 82 Year
  Sex: Female
  Weight: 57 kg

DRUGS (1)
  1. FORTEO [Suspect]
     Indication: OSTEOPOROSIS
     Dates: start: 20030801

REACTIONS (4)
  - CARDIOVASCULAR DISORDER [None]
  - GENERALISED OEDEMA [None]
  - MYOCARDIAL INFARCTION [None]
  - WEIGHT INCREASED [None]
